FAERS Safety Report 4571247-9 (Version None)
Quarter: 2005Q1

REPORT INFORMATION
  Report Type: 
  Country: None (occurrence: None)
  Receive Date: 20050202
  Receipt Date: 20050120
  Transmission Date: 20050727
  Serious: Yes (Hospitalization)
  Sender: FDA-Public Use
  Company Number: 2005-BP-00955BP

PATIENT
  Age: 82 Year
  Sex: Female

DRUGS (1)
  1. COMBIVENT [Suspect]
     Dosage: SEE TEXT (SEE TEXT, 18MCG/103MCG (2 PUFFS Q4-6 PRH) ), IH
     Route: 055
     Dates: start: 20020801

REACTIONS (1)
  - TRANSIENT ISCHAEMIC ATTACK [None]
